FAERS Safety Report 9466862 (Version 3)
Quarter: 2013Q4

REPORT INFORMATION
  Report Type: Report from Study
  Country: CA (occurrence: CA)
  Receive Date: 20130820
  Receipt Date: 20131111
  Transmission Date: 20140711
  Serious: Yes (Other)
  Sender: FDA-Public Use
  Company Number: PHHY2013CA089249

PATIENT
  Age: 54 Year
  Sex: Female

DRUGS (11)
  1. ACLASTA [Suspect]
     Indication: OSTEOPOROSIS
     Dosage: 5 MG, UNK
     Route: 042
     Dates: start: 20120830
  2. ACLASTA [Suspect]
     Dosage: 5 MG, UNK
     Route: 042
     Dates: start: 20131107
  3. DILTIAZEM [Concomitant]
     Dosage: UNK UKN, UNK
  4. CELLCEPT [Concomitant]
     Dosage: UNK UKN, UNK
  5. SYNTHROID [Concomitant]
     Dosage: UNK UKN, UNK
  6. PLAQUENIL [Concomitant]
     Dosage: UNK UKN, UNK
  7. CALCIUM [Concomitant]
     Dosage: UNK UKN, UNK
  8. VITAMIN D [Concomitant]
     Dosage: UNK UKN, UNK
  9. VIAGRA [Concomitant]
     Dosage: UNK UKN, UNK
  10. OXYGEN [Concomitant]
     Dosage: UNK UKN, AT NIGHT
  11. PREDNISONE [Concomitant]
     Dosage: UNK UKN, UNK

REACTIONS (8)
  - Pulmonary hypertension [Unknown]
  - Systemic lupus erythematosus [Unknown]
  - Liver disorder [Unknown]
  - Lung disorder [Unknown]
  - Influenza like illness [Recovered/Resolved]
  - Pain [Recovered/Resolved]
  - Pyrexia [Recovered/Resolved]
  - Nasopharyngitis [Unknown]
